FAERS Safety Report 10108779 (Version 1)
Quarter: 2014Q2

REPORT INFORMATION
  Report Type: Report from Study
  Country: US (occurrence: US)
  Receive Date: 20140425
  Receipt Date: 20140425
  Transmission Date: 20141212
  Serious: Yes (Other)
  Sender: FDA-Public Use
  Company Number: US-ROCHE-1387749

PATIENT
  Age: 9 Year
  Sex: Female
  Weight: 25.1 kg

DRUGS (2)
  1. NUTROPIN AQ [Suspect]
     Indication: BODY HEIGHT BELOW NORMAL
     Route: 058
     Dates: start: 20130511
  2. VYVANSE [Concomitant]
     Route: 065
     Dates: start: 201401

REACTIONS (3)
  - Attention deficit/hyperactivity disorder [Unknown]
  - Headache [Unknown]
  - Abdominal pain upper [Unknown]
